FAERS Safety Report 12065018 (Version 1)
Quarter: 2016Q1

REPORT INFORMATION
  Report Type: Spontaneous
  Country: US (occurrence: US)
  Receive Date: 20160210
  Receipt Date: 20160210
  Transmission Date: 20160526
  Serious: No
  Sender: FDA-Public Use
  Company Number: US-ALLERGAN-1513143US

PATIENT
  Sex: Female

DRUGS (1)
  1. BOTOX [Suspect]
     Active Substance: ONABOTULINUMTOXINA
     Indication: MYOFASCIAL SPASM
     Dosage: UNK, SINGLE
     Route: 030

REACTIONS (3)
  - Off label use [Unknown]
  - Muscle twitching [Unknown]
  - Hyperhidrosis [Unknown]
